FAERS Safety Report 19063411 (Version 1)
Quarter: 2021Q1

REPORT INFORMATION
  Report Type: Spontaneous
  Country: BE (occurrence: BE)
  Receive Date: 20210326
  Receipt Date: 20210326
  Transmission Date: 20210420
  Serious: Yes (Hospitalization, Other)
  Sender: FDA-Public Use
  Company Number: BE-AUROBINDO-AUR-APL-2021-012501

PATIENT
  Age: 3 Month
  Sex: Male

DRUGS (2)
  1. PARACETAMOL [Suspect]
     Active Substance: ACETAMINOPHEN
     Indication: PRODUCT USED FOR UNKNOWN INDICATION
     Dosage: 1 DOSAGE FORM, ONCE A DAY
     Route: 065
  2. IBUPROFEN. [Concomitant]
     Active Substance: IBUPROFEN
     Indication: PRODUCT USED FOR UNKNOWN INDICATION
     Dosage: 10 MILLIGRAM/KILOGRAM
     Route: 065

REACTIONS (12)
  - Coagulopathy [Unknown]
  - Tachycardia [Unknown]
  - Loss of consciousness [Recovered/Resolved]
  - Acute hepatic failure [Recovered/Resolved]
  - Hypoglycaemia [Unknown]
  - Lactic acidosis [Unknown]
  - Toxicity to various agents [Recovered/Resolved]
  - Hepatomegaly [Recovered/Resolved]
  - Encephalopathy [Unknown]
  - Overdose [Unknown]
  - Vomiting [Unknown]
  - Hepatocellular injury [Recovered/Resolved]
